FAERS Safety Report 5830955-X (Version None)
Quarter: 2008Q3

REPORT INFORMATION
  Report Type: 
  Country: None (occurrence: None)
  Receive Date: 20080801
  Receipt Date: 20080226
  Transmission Date: 20090109
  Serious: No
  Sender: FDA-Public Use
  Company Number: US-BRISTOL-MYERS SQUIBB COMPANY-14092332

PATIENT
  Age: 86 Year
  Sex: Female
  Weight: 64 kg

DRUGS (3)
  1. COUMADIN [Suspect]
     Indication: CARDIAC PACEMAKER INSERTION
     Dosage: DOSING: 2MG ALTERNATING WITH 4MG DAILY
     Dates: start: 20070901
  2. HYZAAR [Concomitant]
  3. TENORMIN [Concomitant]

REACTIONS (5)
  - ERUCTATION [None]
  - FLATULENCE [None]
  - FORMICATION [None]
  - HYPOAESTHESIA [None]
  - PAIN IN EXTREMITY [None]
